FAERS Safety Report 6249079-5 (Version None)
Quarter: 2009Q2

REPORT INFORMATION
  Report Type: 
  Country: None (occurrence: None)
  Receive Date: 20090624
  Receipt Date: 20090609
  Transmission Date: 20091009
  Serious: Yes (Hospitalization)
  Sender: FDA-Public Use
  Company Number: DSM-2009-00730

PATIENT
  Age: 83 Year
  Sex: Female
  Weight: 60 kg

DRUGS (1)
  1. SEVIKAR                (OLMESARTAN MEDOXOMIL / AMLODIPINE BESILATE) [Suspect]
     Indication: DRUG USE FOR UNKNOWN INDICATION
     Dosage: 20/5 MG
     Dates: start: 20090430

REACTIONS (6)
  - ANOREXIA [None]
  - EXTRASYSTOLES [None]
  - HYPOKALAEMIA [None]
  - HYPONATRAEMIA [None]
  - VOMITING [None]
  - WEIGHT DECREASED [None]
